FAERS Safety Report 6332296-3 (Version None)
Quarter: 2009Q3

REPORT INFORMATION
  Report Type: 
  Country: None (occurrence: None)
  Receive Date: 20090828
  Receipt Date: 20090827
  Transmission Date: 20100115
  Serious: Yes (Other)
  Sender: FDA-Public Use
  Company Number: US-PFIZER INC-2009240441

PATIENT

DRUGS (1)
  1. VFEND [Suspect]

REACTIONS (2)
  - CEREBRAL ASPERGILLOSIS [None]
  - DIZZINESS [None]
